FAERS Safety Report 12979491 (Version 2)
Quarter: 2017Q1

REPORT INFORMATION
  Report Type: Spontaneous
  Country: US (occurrence: US)
  Receive Date: 20161128
  Receipt Date: 20170109
  Transmission Date: 20170428
  Serious: Yes (Hospitalization, Other)
  Sender: FDA-Public Use
  Company Number: US-PFIZER INC-2016544862

PATIENT
  Age: 46 Year
  Sex: Male
  Weight: 76 kg

DRUGS (11)
  1. ADVIL [Suspect]
     Active Substance: IBUPROFEN
     Indication: MYALGIA
     Dosage: 400 MG, 2X/DAY (200 MG, 2 IN THE MORNING AND 2 AT NIGHT)
     Route: 048
     Dates: start: 2013, end: 20161027
  2. ADVIL [Suspect]
     Active Substance: IBUPROFEN
     Indication: ARTHRALGIA
  3. ADVIL [Suspect]
     Active Substance: IBUPROFEN
     Indication: BONE PAIN
  4. ADVIL [Suspect]
     Active Substance: IBUPROFEN
     Indication: BONE PAIN
     Dosage: 200 MG, 2X/DAY
     Route: 048
  5. ADVIL [Suspect]
     Active Substance: IBUPROFEN
     Indication: BONE PAIN
  6. ADVIL [Suspect]
     Active Substance: IBUPROFEN
     Indication: HEADACHE
     Dosage: UNK, 2X/DAY (2 IN THE MORNING AND 2 AT NIGHT)
     Route: 048
     Dates: start: 2013, end: 20161027
  7. ADVIL [Suspect]
     Active Substance: IBUPROFEN
     Indication: HEADACHE
     Dosage: 200 MG, 2X/DAY
     Route: 048
  8. ADVIL [Suspect]
     Active Substance: IBUPROFEN
     Indication: MYALGIA
  9. ADVIL [Suspect]
     Active Substance: IBUPROFEN
     Indication: HEADACHE
     Dosage: TWICE A DAY, TWICE IN THE BEGINNING OF THE YEAR
  10. ADVIL [Suspect]
     Active Substance: IBUPROFEN
     Indication: ARTHRALGIA
  11. ADVIL [Suspect]
     Active Substance: IBUPROFEN
     Indication: MYALGIA

REACTIONS (17)
  - Gastric disorder [Unknown]
  - Dehydration [Not Recovered/Not Resolved]
  - Hepatic pain [Unknown]
  - Pharyngeal oedema [Unknown]
  - Intentional product use issue [Unknown]
  - Weight decreased [Not Recovered/Not Resolved]
  - Haematochezia [Unknown]
  - Dyspepsia [Unknown]
  - Abdominal pain upper [Not Recovered/Not Resolved]
  - Urticaria [Unknown]
  - Condition aggravated [Not Recovered/Not Resolved]
  - Gastritis [Unknown]
  - Impaired work ability [Unknown]
  - Chest pain [Unknown]
  - Gastritis erosive [Not Recovered/Not Resolved]
  - Syncope [Unknown]
  - Vision blurred [Unknown]

NARRATIVE: CASE EVENT DATE: 2014
